FAERS Safety Report 8908238 (Version 1)
Quarter: 2012Q4

REPORT INFORMATION
  Report Type: 
  Country: US (occurrence: US)
  Receive Date: 20121113
  Receipt Date: 20121113
  Transmission Date: 20130627
  Serious: No
  Sender: FDA-Public Use
  Company Number: US-AMGEN-USASP2012039121

PATIENT
  Age: 49 Year
  Sex: Female
  Weight: 113.38 kg

DRUGS (6)
  1. ENBREL [Suspect]
     Indication: RHEUMATOID ARTHRITIS
     Dosage: 50 mg, qwk
     Dates: start: 20120605
  2. OMEPRAZOLE [Concomitant]
     Dosage: 40 mg, UNK
     Route: 048
  3. PROCHLORPERAZ [Concomitant]
     Dosage: 5 mg, UNK
     Route: 048
  4. METHOTREXATE [Concomitant]
     Dosage: 50 mg, UNK
  5. XOPENEX [Concomitant]
     Dosage: UNK
     Route: 055
  6. FOLIC ACID [Concomitant]
     Dosage: UNK

REACTIONS (6)
  - Dyspnoea [Not Recovered/Not Resolved]
  - Cough [Not Recovered/Not Resolved]
  - Headache [Not Recovered/Not Resolved]
  - Nasopharyngitis [Not Recovered/Not Resolved]
  - Injection site swelling [Unknown]
  - Injection site bruising [Unknown]
